FAERS Safety Report 10202932 (Version 1)
Quarter: 2014Q2

REPORT INFORMATION
  Report Type: Spontaneous
  Country: US (occurrence: US)
  Receive Date: 20140528
  Receipt Date: 20140528
  Transmission Date: 20141212
  Serious: No
  Sender: FDA-Public Use
  Company Number: US-009507513-1405USA006851

PATIENT
  Age: 81 Year
  Sex: Female

DRUGS (3)
  1. REMERON [Suspect]
     Indication: DEPRESSION
     Dosage: 15 MG, QD
     Route: 048
     Dates: start: 2012, end: 2014
  2. REMERON [Suspect]
     Dosage: 7.5 MG, QD
     Route: 048
     Dates: start: 2014
  3. ACTONEL [Concomitant]

REACTIONS (1)
  - Dysphagia [Not Recovered/Not Resolved]
